FAERS Safety Report 9098425 (Version 1)
Quarter: 2013Q1

REPORT INFORMATION
  Report Type: Report from Study
  Country: US (occurrence: US)
  Receive Date: 20130213
  Receipt Date: 20130213
  Transmission Date: 20140127
  Serious: Yes (Other)
  Sender: FDA-Public Use
  Company Number: US-ASTRAZENECA-2013SE08415

PATIENT
  Age: 58 Year
  Sex: Female

DRUGS (2)
  1. TOPROL XL [Suspect]
     Route: 048
  2. NORVASC [Concomitant]

REACTIONS (2)
  - Blood pressure increased [Unknown]
  - Drug ineffective [Unknown]
